FAERS Safety Report 8772936 (Version 1)
Quarter: 2012Q4

REPORT INFORMATION
  Report Type: 
  Country: US (occurrence: US)
  Receive Date: 20120907
  Receipt Date: 20120907
  Transmission Date: 20130627
  Serious: Yes (Other)
  Sender: FDA-Public Use
  Company Number: US-ELI_LILLY_AND_COMPANY-US201208008869

PATIENT
  Age: 63 None
  Sex: Female
  Weight: 86.17 kg

DRUGS (3)
  1. BYETTA [Suspect]
     Indication: TYPE 2 DIABETES MELLITUS
     Dosage: 5 ug, bid
     Route: 058
     Dates: start: 2010, end: 2010
  2. BYETTA [Suspect]
     Dosage: 10 ug, bid
     Route: 058
     Dates: start: 2010, end: 201206
  3. BYETTA [Suspect]
     Dosage: 10 ug, bid
     Route: 058
     Dates: start: 20120828

REACTIONS (3)
  - Cholecystectomy [Recovered/Resolved]
  - Clostridium difficile infection [Recovered/Resolved]
  - Diarrhoea [Not Recovered/Not Resolved]
